FAERS Safety Report 10450411 (Version 6)
Quarter: 2014Q4

REPORT INFORMATION
  Report Type: Report from Study
  Country: AU (occurrence: AU)
  Receive Date: 20140912
  Receipt Date: 20141112
  Transmission Date: 20150528
  Serious: Yes (Hospitalization)
  Sender: FDA-Public Use
  Company Number: AU-009507513-1310AUS002148

PATIENT
  Age: 69 Year
  Sex: Female
  Weight: 64.2 kg

DRUGS (7)
  1. TARGIN [Concomitant]
     Active Substance: NALOXONE HYDROCHLORIDE\OXYCODONE HYDROCHLORIDE
     Indication: ADVERSE EVENT
     Dosage: 20 MG, PRN
     Route: 048
     Dates: start: 20130902
  2. OXYCONTIN [Concomitant]
     Active Substance: OXYCODONE HYDROCHLORIDE
     Indication: ADVERSE EVENT
     Dosage: 5 MG, PRN
     Route: 048
     Dates: start: 20130902
  3. MELOXICAM. [Concomitant]
     Active Substance: MELOXICAM
     Indication: PAIN IN EXTREMITY
     Dosage: UNK
     Dates: start: 2010
  4. CLEXANE (ENOXAPARIN SODIUM) [Concomitant]
     Active Substance: ENOXAPARIN SODIUM
     Indication: DEEP VEIN THROMBOSIS
     Dosage: UNK
     Dates: start: 201306, end: 20131009
  5. PANADOL [Concomitant]
     Active Substance: ACETAMINOPHEN
     Indication: FEMUR FRACTURE
     Dosage: UNK
     Dates: start: 201305
  6. ENDONE [Concomitant]
     Active Substance: OXYCODONE HYDROCHLORIDE
     Indication: PAIN IN EXTREMITY
     Dosage: UNK
     Dates: start: 2010
  7. PEMBROLIZUMAB. [Suspect]
     Active Substance: PEMBROLIZUMAB
     Indication: NON-SMALL CELL LUNG CANCER
     Dosage: 10 MG/KG, QOW
     Route: 042
     Dates: start: 20130820, end: 20130917

REACTIONS (4)
  - Pathological fracture [Not Recovered/Not Resolved]
  - Pleural effusion [Recovering/Resolving]
  - Thoracic vertebral fracture [Not Recovered/Not Resolved]
  - Lymphangitis [Not Recovered/Not Resolved]

NARRATIVE: CASE EVENT DATE: 20130930
